FAERS Safety Report 14923458 (Version 2)
Quarter: 2018Q2

REPORT INFORMATION
  Report Type: Spontaneous
  Country: CZ (occurrence: CZ)
  Receive Date: 20180522
  Receipt Date: 20180611
  Transmission Date: 20180711
  Serious: Yes (Other)
  Sender: FDA-Public Use
  Company Number: CZ-BAYER-2018-092594

PATIENT
  Age: 36 Year
  Sex: Female

DRUGS (7)
  1. CIPROFLOXACIN. [Suspect]
     Active Substance: CIPROFLOXACIN
     Indication: PNEUMONIA
     Dosage: UNK
     Route: 065
  2. MEROPENEM. [Suspect]
     Active Substance: MEROPENEM
     Dosage: UNK
     Route: 065
  3. FLUCONAZOLE. [Suspect]
     Active Substance: FLUCONAZOLE
     Indication: PNEUMONIA
     Dosage: UNK
     Route: 065
  4. GENTAMICIN. [Suspect]
     Active Substance: GENTAMICIN
     Indication: PRODUCT USED FOR UNKNOWN INDICATION
     Dosage: UNK
     Route: 065
  5. SULFAMETHOXAZOLE [Suspect]
     Active Substance: SULFAMETHOXAZOLE
     Indication: RESPIRATORY TRACT INFECTION
     Dosage: UNK
     Route: 065
  6. METRONIDAZOLE. [Suspect]
     Active Substance: METRONIDAZOLE
     Indication: PRODUCT USED FOR UNKNOWN INDICATION
     Dosage: UNK
     Route: 065
  7. PIPERACILLIN [Suspect]
     Active Substance: PIPERACILLIN
     Indication: PNEUMONIA
     Dosage: UNK
     Route: 065

REACTIONS (10)
  - Anaemia [Unknown]
  - Malnutrition [Unknown]
  - Drug ineffective [Unknown]
  - Respiratory failure [Recovered/Resolved]
  - Atrial fibrillation [Unknown]
  - C-reactive protein increased [Recovered/Resolved]
  - Thrombosis [Unknown]
  - Pneumonia [Unknown]
  - Drug ineffective for unapproved indication [Recovered/Resolved]
  - Hypoglossal nerve paralysis [Unknown]

NARRATIVE: CASE EVENT DATE: 20170415
